FAERS Safety Report 5017150-1 (Version None)
Quarter: 2006Q2

REPORT INFORMATION
  Report Type: 
  Country: None (occurrence: None)
  Receive Date: 20060525
  Receipt Date: 20060502
  Transmission Date: 20061013
  Serious: Yes (Hospitalization)
  Sender: FDA-Public Use
  Company Number: US200605001195

PATIENT
  Sex: Female

DRUGS (5)
  1. CYMBALTA [Suspect]
     Dosage: 60 MG
  2. PAXIL [Concomitant]
  3. EFFEXOR [Concomitant]
  4. SEROQUEL [Concomitant]
  5. KLONOPIN [Concomitant]

REACTIONS (2)
  - ABNORMAL BEHAVIOUR [None]
  - ACUTE PSYCHOSIS [None]
